FAERS Safety Report 25674200 (Version 1)
Quarter: 2025Q3

REPORT INFORMATION
  Report Type: Spontaneous
  Country: US (occurrence: US)
  Receive Date: 20250813
  Receipt Date: 20250813
  Transmission Date: 20251021
  Serious: Yes (Other)
  Sender: ALEMBIC
  Company Number: US-ALEMBIC PHARMACUETICALS LIMITED-2025SCAL001014

PATIENT

DRUGS (1)
  1. METHOTREXATE [Suspect]
     Active Substance: METHOTREXATE
     Indication: Rheumatoid arthritis
     Route: 065

REACTIONS (5)
  - Epstein Barr virus positive mucocutaneous ulcer [Recovered/Resolved]
  - Eye infection fungal [Recovered/Resolved]
  - Skin lesion [Recovered/Resolved]
  - Erythema of eyelid [Recovered/Resolved]
  - Periorbital oedema [Recovered/Resolved]
